FAERS Safety Report 11509879 (Version 1)
Quarter: 2015Q3

REPORT INFORMATION
  Report Type: Spontaneous
  Country: US (occurrence: US)
  Receive Date: 20150915
  Receipt Date: 20150915
  Transmission Date: 20151125
  Serious: No
  Sender: FDA-Public Use
  Company Number: US-JNJFOC-20150420602

PATIENT
  Sex: Female

DRUGS (3)
  1. PYRILAMINE MALEATE [Concomitant]
     Active Substance: PYRILAMINE MALEATE
     Indication: PRODUCT USED FOR UNKNOWN INDICATION
     Dosage: 2 PILLS
     Route: 065
  2. MOTRIN IB [Suspect]
     Active Substance: IBUPROFEN
     Indication: NECK PAIN
     Dosage: 2 CAPLETS
     Route: 048
     Dates: start: 20150422, end: 20150422
  3. PAMABROM [Concomitant]
     Active Substance: PAMABROM
     Indication: PRODUCT USED FOR UNKNOWN INDICATION
     Route: 065

REACTIONS (5)
  - Mydriasis [Not Recovered/Not Resolved]
  - Incorrect dose administered [Unknown]
  - Nausea [Not Recovered/Not Resolved]
  - Vomiting [Not Recovered/Not Resolved]
  - Dizziness [Not Recovered/Not Resolved]

NARRATIVE: CASE EVENT DATE: 20150422
